FAERS Safety Report 8570375-0 (Version None)
Quarter: 2012Q3

REPORT INFORMATION
  Report Type: 
  Country: None (occurrence: None)
  Receive Date: 20120803
  Receipt Date: 20120727
  Transmission Date: 20120928
  Serious: Yes (Other)
  Sender: FDA-Public Use
  Company Number: GB-ELI_LILLY_AND_COMPANY-GB201207009243

PATIENT
  Sex: Female

DRUGS (1)
  1. BYDUREON [Suspect]
     Dosage: 2 MG, UNK

REACTIONS (5)
  - PAIN IN EXTREMITY [None]
  - WEIGHT DECREASED [None]
  - ABDOMINAL PAIN [None]
  - VOMITING [None]
  - OEDEMA PERIPHERAL [None]
